FAERS Safety Report 20046430 (Version 1)
Quarter: 2021Q4

REPORT INFORMATION
  Report Type: Other
  Country: TW (occurrence: TW)
  Receive Date: 20211109
  Receipt Date: 20211109
  Transmission Date: 20220303
  Serious: Yes (Other)
  Sender: FDA-Public Use
  Company Number: TW-002147023-NVSC2021TW246738

PATIENT
  Age: 74 Year
  Sex: Female

DRUGS (1)
  1. LUCENTIS [Suspect]
     Active Substance: RANIBIZUMAB
     Indication: Retinal vein occlusion
     Dosage: 0.5 MG, PRN
     Route: 047
     Dates: start: 202012

REACTIONS (2)
  - Retinal thickening [Unknown]
  - Colour vision tests abnormal [Unknown]

NARRATIVE: CASE EVENT DATE: 20211006
